APPROVED DRUG PRODUCT: VANCENASE AQ
Active Ingredient: BECLOMETHASONE DIPROPIONATE MONOHYDRATE
Strength: EQ 0.042MG DIPROP/SPRAY
Dosage Form/Route: SPRAY, METERED;NASAL
Application: N019589 | Product #001
Applicant: SCHERING CORP SUB SCHERING PLOUGH CORP
Approved: Dec 23, 1987 | RLD: No | RS: No | Type: DISCN